FAERS Safety Report 12337934 (Version 1)
Quarter: 2016Q2

REPORT INFORMATION
  Report Type: Spontaneous
  Country: US (occurrence: US)
  Receive Date: 20160505
  Receipt Date: 20160505
  Transmission Date: 20160815
  Serious: No
  Sender: FDA-Public Use
  Company Number: US-WARNER CHILCOTT, LLC-1051508

PATIENT
  Sex: Female
  Weight: 64.14 kg

DRUGS (2)
  1. TENORMIN [Concomitant]
     Active Substance: ATENOLOL
  2. ACTONEL [Suspect]
     Active Substance: RISEDRONATE SODIUM
     Indication: OSTEOPOROSIS
     Route: 048
     Dates: start: 201012, end: 201012

REACTIONS (5)
  - Burning sensation [Recovered/Resolved]
  - Malaise [Recovered/Resolved]
  - Dizziness [Recovered/Resolved]
  - Depressed mood [Recovered/Resolved]
  - Pain [Recovered/Resolved]
